FAERS Safety Report 21344091 (Version 2)
Quarter: 2025Q1

REPORT INFORMATION
  Report Type: Spontaneous
  Country: US (occurrence: US)
  Receive Date: 20220916
  Receipt Date: 20250115
  Transmission Date: 20250409
  Serious: No
  Sender: SK LIFE SCIENCE
  Company Number: US-SK LIFE SCIENCE, INC-SKPVG-2022-000483

PATIENT

DRUGS (12)
  1. XCOPRI [Suspect]
     Active Substance: CENOBAMATE
     Indication: Epilepsy
     Route: 048
  2. XCOPRI [Suspect]
     Active Substance: CENOBAMATE
     Indication: Partial seizures
     Route: 048
     Dates: start: 20220307
  3. XCOPRI [Suspect]
     Active Substance: CENOBAMATE
     Route: 048
     Dates: start: 20220329
  4. XCOPRI [Suspect]
     Active Substance: CENOBAMATE
     Route: 048
     Dates: start: 20220404, end: 20220417
  5. XCOPRI [Suspect]
     Active Substance: CENOBAMATE
     Route: 048
     Dates: start: 20220418
  6. XCOPRI [Suspect]
     Active Substance: CENOBAMATE
     Dosage: 62.5 MILLIGRAM, QD AT NIGHT TIME (12.5MG IN TITRATION PACK AND 50MG BOTTLE)
     Route: 048
     Dates: start: 20220606
  7. XCOPRI [Suspect]
     Active Substance: CENOBAMATE
     Route: 048
  8. XCOPRI [Suspect]
     Active Substance: CENOBAMATE
     Dosage: 112.5 MILLIGRAM, QD
     Route: 048
  9. TRILEPTAL [Suspect]
     Active Substance: OXCARBAZEPINE
     Indication: Product used for unknown indication
  10. TRILEPTAL [Suspect]
     Active Substance: OXCARBAZEPINE
     Route: 065
     Dates: start: 202204
  11. ONFI [Concomitant]
     Active Substance: CLOBAZAM
     Indication: Product used for unknown indication
     Route: 065
     Dates: start: 202107, end: 20220121
  12. ONFI [Concomitant]
     Active Substance: CLOBAZAM
     Route: 065
     Dates: end: 20220323

REACTIONS (19)
  - Feeling abnormal [Unknown]
  - Fall [Unknown]
  - Illness [Unknown]
  - Blood sodium abnormal [Unknown]
  - Drug intolerance [Unknown]
  - Off label use [Not Recovered/Not Resolved]
  - Seizure [Unknown]
  - General physical condition abnormal [Unknown]
  - Mobility decreased [Unknown]
  - Feeling abnormal [Unknown]
  - Product use issue [Unknown]
  - Fatigue [Not Recovered/Not Resolved]
  - Lethargy [Unknown]
  - Weight decreased [Unknown]
  - Hiccups [Unknown]
  - Decreased appetite [Not Recovered/Not Resolved]
  - Malaise [Unknown]
  - Nausea [Not Recovered/Not Resolved]
  - Vomiting [Not Recovered/Not Resolved]

NARRATIVE: CASE EVENT DATE: 20220329
